FAERS Safety Report 21581490 (Version 2)
Quarter: 2023Q1

REPORT INFORMATION
  Report Type: Report from Study
  Country: BR (occurrence: BR)
  Receive Date: 20221111
  Receipt Date: 20230213
  Transmission Date: 20230418
  Serious: Yes (Other)
  Sender: FDA-Public Use
  Company Number: BR-ABBVIE-4140636

PATIENT
  Age: 65 Year
  Sex: Female
  Weight: 76 kg

DRUGS (9)
  1. HUMIRA [Suspect]
     Active Substance: ADALIMUMAB
     Indication: Rheumatoid arthritis
     Dosage: LAST ADMIN DATE- 2022
     Route: 058
     Dates: start: 20220801
  2. LOSARTAN POTASSIUM [Concomitant]
     Active Substance: LOSARTAN POTASSIUM
     Indication: Product used for unknown indication
  3. PREDNISONE [Concomitant]
     Active Substance: PREDNISONE
     Indication: Product used for unknown indication
     Dosage: FORM STRENGTH: 5 MG
  4. CALCIUM [Concomitant]
     Active Substance: CALCIUM
     Indication: Product used for unknown indication
  5. ANACAPS [Concomitant]
     Indication: Supplementation therapy
  6. Famox [Concomitant]
     Indication: Product used for unknown indication
     Dosage: FORM STRENGTH- 40 MG
  7. Desve (desvenlafaxine succinate monohydrate) [Concomitant]
     Indication: Anxiety
  8. Dual [Concomitant]
     Indication: Product used for unknown indication
     Dosage: FORM STRENGTH- 30 MG
  9. Unak [Concomitant]
     Indication: Product used for unknown indication

REACTIONS (10)
  - Umbilical hernia [Recovered/Resolved]
  - Incorrect route of product administration [Unknown]
  - Pain [Unknown]
  - Abdominal discomfort [Unknown]
  - Flatulence [Unknown]
  - Memory impairment [Unknown]
  - COVID-19 [Unknown]
  - Discomfort [Unknown]
  - Cholelithiasis [Recovered/Resolved]
  - Allergic sinusitis [Not Recovered/Not Resolved]

NARRATIVE: CASE EVENT DATE: 20220907
